FAERS Safety Report 19017187 (Version 1)
Quarter: 2021Q1

REPORT INFORMATION
  Report Type: Spontaneous
  Country: US (occurrence: US)
  Receive Date: 20210317
  Receipt Date: 20210317
  Transmission Date: 20210420
  Serious: No
  Sender: FDA-Public Use
  Company Number: US-BEH-2021129277

PATIENT
  Sex: Female

DRUGS (1)
  1. HIZENTRA [Suspect]
     Active Substance: HUMAN IMMUNOGLOBULIN G
     Indication: DERMATOMYOSITIS
     Dosage: 20 GRAM, TWICE WEEKLY
     Route: 058
     Dates: start: 20190315

REACTIONS (3)
  - Off label use [Unknown]
  - Headache [Unknown]
  - No adverse event [Unknown]
